FAERS Safety Report 4635766-9 (Version None)
Quarter: 2005Q2

REPORT INFORMATION
  Report Type: 
  Country: None (occurrence: None)
  Receive Date: 20050413
  Receipt Date: 20050401
  Transmission Date: 20051028
  Serious: Yes (Hospitalization)
  Sender: FDA-Public Use
  Company Number: 2005048531

PATIENT
  Sex: Female

DRUGS (4)
  1. LYRICA [Suspect]
     Indication: ILL-DEFINED DISORDER
     Dosage: 300 MG (150 MG, 2 IN 1 D), ORAL
     Route: 048
     Dates: start: 20050318, end: 20050321
  2. MORPHINE [Concomitant]
  3. FLUPIRTINE MALEATE (FLUPIRTINE MALEATE) [Concomitant]
  4. HYDROMORPHONE HYDROCHLORIDE (HYDROMORPHINE HYDROCHLORIDE) [Concomitant]

REACTIONS (4)
  - BLOOD CREATININE INCREASED [None]
  - DYSARTHRIA [None]
  - RESPIRATORY DEPRESSION [None]
  - SOMNOLENCE [None]
